FAERS Safety Report 17433454 (Version 1)
Quarter: 2020Q1

REPORT INFORMATION
  Report Type: Spontaneous
  Country: US (occurrence: US)
  Receive Date: 20200219
  Receipt Date: 20200219
  Transmission Date: 20200409
  Serious: Yes (Hospitalization)
  Sender: FDA-Public Use
  Company Number: US-ASTRAZENECA-2020SE21920

PATIENT
  Sex: Female

DRUGS (6)
  1. METFORMIN [Concomitant]
     Active Substance: METFORMIN HYDROCHLORIDE
     Route: 065
  2. PAIN MEDICATION [Concomitant]
     Active Substance: UNSPECIFIED INGREDIENT
     Indication: PAIN
     Route: 065
  3. BYETTA [Suspect]
     Active Substance: EXENATIDE
     Route: 065
     Dates: end: 2018
  4. BYDUREON BCISE [Suspect]
     Active Substance: EXENATIDE
     Route: 065
     Dates: start: 2018
  5. BYDUREON BCISE [Suspect]
     Active Substance: EXENATIDE
     Route: 065
  6. INSULIN [Concomitant]
     Active Substance: INSULIN NOS
     Indication: BLOOD GLUCOSE FLUCTUATION
     Dosage: UNKNOWN
     Route: 065

REACTIONS (8)
  - Benign neoplasm of thyroid gland [Unknown]
  - Muscular weakness [Unknown]
  - Rheumatoid arthritis [Unknown]
  - Joint swelling [Unknown]
  - Weight decreased [Recovering/Resolving]
  - Blood glucose fluctuation [Not Recovered/Not Resolved]
  - Injection site extravasation [Unknown]
  - Infection [Unknown]

NARRATIVE: CASE EVENT DATE: 2018
